FAERS Safety Report 7737802-X (Version None)
Quarter: 2011Q3

REPORT INFORMATION
  Report Type: 
  Country: None (occurrence: None)
  Receive Date: 20110908
  Receipt Date: 20110902
  Transmission Date: 20111222
  Serious: Yes (Other)
  Sender: FDA-Public Use
  Company Number: PHHY2011CA76689

PATIENT
  Sex: Female

DRUGS (5)
  1. HALDOL [Concomitant]
  2. RISPERDAL [Concomitant]
  3. OLANZAPINE [Concomitant]
  4. CLOZAPINE [Suspect]
     Indication: SCHIZOPHRENIA
     Dates: start: 20080608, end: 20110624
  5. RAMIPRIL [Concomitant]

REACTIONS (3)
  - PYREXIA [None]
  - PNEUMONIA [None]
  - URINARY TRACT INFECTION [None]
